FAERS Safety Report 7210614-1 (Version None)
Quarter: 2011Q1

REPORT INFORMATION
  Report Type: 
  Country: None (occurrence: None)
  Receive Date: 20110105
  Receipt Date: 20101222
  Transmission Date: 20110831
  Serious: Yes (Other)
  Sender: FDA-Public Use
  Company Number: US-ROCHE-751318

PATIENT
  Age: 54 Year
  Sex: Female
  Weight: 49 kg

DRUGS (2)
  1. ACTEMRA [Suspect]
     Indication: RHEUMATOID ARTHRITIS
     Dosage: FORM; INFUSION
     Route: 042
     Dates: start: 20101115
  2. ACTEMRA [Suspect]
     Route: 042
     Dates: start: 20101221

REACTIONS (5)
  - TACHYCARDIA [None]
  - LOSS OF CONSCIOUSNESS [None]
  - HYPERHIDROSIS [None]
  - DYSPNOEA [None]
  - HYPERTENSION [None]
